FAERS Safety Report 8858694 (Version 3)
Quarter: 2012Q4

REPORT INFORMATION
  Report Type: Report from Study
  Country: US (occurrence: US)
  Receive Date: 20121024
  Receipt Date: 20121113
  Transmission Date: 20130627
  Serious: Yes (Hospitalization)
  Sender: FDA-Public Use
  Company Number: US-JNJFOC-20121002172

PATIENT
  Age: 17 Year
  Sex: Female
  Weight: 56 kg

DRUGS (41)
  1. REMICADE [Suspect]
     Indication: CROHN^S DISEASE
     Route: 042
  2. HUMIRA [Concomitant]
  3. 5-ASA [Concomitant]
  4. DIAMOX [Concomitant]
  5. ANTIBIOTICS [Concomitant]
     Indication: INFLAMMATORY BOWEL DISEASE
  6. FOLIC ACID [Concomitant]
  7. PROBIOTICS [Concomitant]
  8. ACETAMINOPHEN [Concomitant]
  9. LANSOPRAZOL [Concomitant]
  10. ZOFRAN [Concomitant]
  11. ULTRAM [Concomitant]
  12. PREDNISONE [Concomitant]
  13. HYDROCORTISONE [Concomitant]
  14. BENADRYL [Concomitant]
  15. PROPOFOL [Concomitant]
  16. PRECEDEX [Concomitant]
  17. EPINEPHRINE [Concomitant]
  18. MORPHINE [Concomitant]
  19. MIRALAX [Concomitant]
  20. NEXIUM [Concomitant]
  21. BENTYL [Concomitant]
  22. DULCOLAX [Concomitant]
  23. DOCUSATE [Concomitant]
  24. HYDROMORPHONE [Concomitant]
  25. LORAZEPAM [Concomitant]
  26. ALBUTEROL [Concomitant]
  27. DICYCLOMINE [Concomitant]
  28. ZOSYN [Concomitant]
  29. REGLAN [Concomitant]
  30. ROCURONIUM [Concomitant]
  31. NEOSTIGMINE [Concomitant]
  32. LIDOCAINE [Concomitant]
  33. ROBINUL [Concomitant]
  34. FLUCONAZOLE [Concomitant]
  35. FENTANYL [Concomitant]
  36. TOTAL PARENTERAL NUTRITION [Concomitant]
  37. FAT EMULSION [Concomitant]
  38. SIMETHICONE [Concomitant]
  39. MIDAZOLAM [Concomitant]
  40. HYOSCYAMINE [Concomitant]
  41. IBUPROFEN [Concomitant]

REACTIONS (4)
  - Syncope [Recovered/Resolved]
  - Crohn^s disease [Recovered/Resolved with Sequelae]
  - Iron deficiency anaemia [Recovered/Resolved with Sequelae]
  - Pancreatitis [Recovered/Resolved]
